FAERS Safety Report 18853435 (Version 2)
Quarter: 2021Q2

REPORT INFORMATION
  Report Type: Report from Study
  Country: US (occurrence: US)
  Receive Date: 20210205
  Receipt Date: 20210414
  Transmission Date: 20210717
  Serious: Yes (Hospitalization, Disabling, Other)
  Sender: FDA-Public Use
  Company Number: US-EMD SERONO-9094218

PATIENT
  Age: 73 Year
  Sex: Female
  Weight: 48 kg

DRUGS (1)
  1. REBIF [Suspect]
     Active Substance: INTERFERON BETA-1A
     Indication: MULTIPLE SCLEROSIS
     Dosage: MANUAL
     Route: 058
     Dates: start: 20151210

REACTIONS (9)
  - Urinary tract infection [Recovering/Resolving]
  - Lower respiratory tract infection fungal [Unknown]
  - Sinusitis fungal [Unknown]
  - Condition aggravated [Unknown]
  - Lack of injection site rotation [Not Recovered/Not Resolved]
  - Bedridden [Unknown]
  - Intention tremor [Unknown]
  - Device related infection [Unknown]
  - Wheelchair user [Unknown]

NARRATIVE: CASE EVENT DATE: 2017
